FAERS Safety Report 8387585-8 (Version None)
Quarter: 2012Q2

REPORT INFORMATION
  Report Type: 
  Country: None (occurrence: None)
  Receive Date: 20120525
  Receipt Date: 20120522
  Transmission Date: 20120825
  Serious: Yes (Other)
  Sender: FDA-Public Use
  Company Number: PHEH2011US00475

PATIENT
  Sex: Female

DRUGS (3)
  1. ZOMETA [Suspect]
  2. METRONIDAZOLE [Concomitant]
     Dosage: 500 MG
  3. CLINDAMYCIN [Concomitant]
     Dosage: 300 MG

REACTIONS (16)
  - CONVULSION [None]
  - PAIN [None]
  - OSTEONECROSIS OF JAW [None]
  - DEFORMITY [None]
  - ANXIETY [None]
  - NECK PAIN [None]
  - EMOTIONAL DISTRESS [None]
  - SPINAL CORD INJURY [None]
  - INFECTION [None]
  - PHYSICAL DISABILITY [None]
  - BLOOD CHOLESTEROL INCREASED [None]
  - THYROID DISORDER [None]
  - BREAST CANCER [None]
  - PRIMARY SEQUESTRUM [None]
  - INJURY [None]
  - HYPOTENSION [None]
